FAERS Safety Report 14760818 (Version 3)
Quarter: 2018Q2

REPORT INFORMATION
  Report Type: Spontaneous
  Country: US (occurrence: US)
  Receive Date: 20180414
  Receipt Date: 20180511
  Transmission Date: 20180711
  Serious: Yes (Hospitalization)
  Sender: FDA-Public Use
  Company Number: US-JNJFOC-20180402091

PATIENT
  Age: 88 Year
  Sex: Male

DRUGS (21)
  1. IMBRUVICA [Suspect]
     Active Substance: IBRUTINIB
     Indication: CHRONIC LYMPHOCYTIC LEUKAEMIA
     Route: 048
     Dates: start: 20180322, end: 20180326
  2. FLAGYL [Concomitant]
     Active Substance: METRONIDAZOLE\METRONIDAZOLE HYDROCHLORIDE
     Dosage: 1 TABLET (500 MG TOTAL) BY MOUTH 3 (THREE) TIMES A DAY FOR 8 DAYS
     Route: 048
     Dates: start: 20180322, end: 20180330
  3. PREDNISONE. [Concomitant]
     Active Substance: PREDNISONE
     Dosage: 1 TABLET (10 MG TOTAL) BY MOUTH DAILY FOR 7 DAYS
     Route: 048
     Dates: start: 20180322, end: 20180329
  4. PRILOSEC [Concomitant]
     Active Substance: OMEPRAZOLE MAGNESIUM
     Route: 048
     Dates: start: 20180117
  5. KENALOG [Concomitant]
     Active Substance: TRIAMCINOLONE ACETONIDE
  6. CEFDINIR. [Concomitant]
     Active Substance: CEFDINIR
     Dosage: 1 CAPSULE (300 MG TOTAL) BY MOUTH 2 TIMES A DAY AT 6:00 AM AND 4:00 PM FOR 10 DAYS
     Dates: start: 20180322, end: 20180402
  7. SYNTHROID [Concomitant]
     Active Substance: LEVOTHYROXINE SODIUM
     Dosage: 150 MCG, DAILY AT 6:00 AM
     Route: 048
  8. PACERONE [Concomitant]
     Active Substance: AMIODARONE HYDROCHLORIDE
     Dosage: 1 TABLET TWICE DAILY UNTIL 3/31,THEN TRANSITION TO 1 TABLET ONCE DAILY
     Dates: start: 20180322, end: 20180410
  9. LEVOTHROID [Concomitant]
     Active Substance: LEVOTHYROXINE SODIUM
     Dosage: 150 MCG, DAILY AT 6:00 AM
     Route: 048
  10. PREDNISONE. [Concomitant]
     Active Substance: PREDNISONE
     Dosage: 1 TABLET (10 MG TOTAL) BY MOUTH DAILY FOR 7 DAYS
     Route: 048
     Dates: end: 20180321
  11. FOLVITE [Concomitant]
     Active Substance: FOLIC ACID
     Route: 048
     Dates: start: 20180218
  12. IMBRUVICA [Suspect]
     Active Substance: IBRUTINIB
     Indication: CHRONIC LYMPHOCYTIC LEUKAEMIA
     Route: 048
     Dates: start: 20180309, end: 201803
  13. IMBRUVICA [Suspect]
     Active Substance: IBRUTINIB
     Indication: CHRONIC LYMPHOCYTIC LEUKAEMIA
     Route: 048
     Dates: start: 20180329, end: 201804
  14. ZANAFLEX [Concomitant]
     Active Substance: TIZANIDINE HYDROCHLORIDE
     Indication: MUSCLE SPASMS
     Dosage: 1 TABLET ( 2 MG TOTAL) BY MOUTH EVERY 8 (EIGHT) HOURS AS NEEDED
     Route: 048
     Dates: start: 20180322, end: 20180401
  15. ZOFRAN [Concomitant]
     Active Substance: ONDANSETRON HYDROCHLORIDE
  16. LEXAPRO [Suspect]
     Active Substance: ESCITALOPRAM OXALATE
     Indication: PRODUCT USED FOR UNKNOWN INDICATION
  17. PLAVIX [Suspect]
     Active Substance: CLOPIDOGREL BISULFATE
     Indication: PRODUCT USED FOR UNKNOWN INDICATION
     Route: 065
  18. ZYLOPRIM [Concomitant]
     Active Substance: ALLOPURINOL
     Dosage: 300 MG, DAILY WITH BREAKFAST
     Route: 048
     Dates: start: 20180218
  19. ZOCOR [Concomitant]
     Active Substance: SIMVASTATIN
     Route: 048
     Dates: end: 20180410
  20. REMERON [Suspect]
     Active Substance: MIRTAZAPINE
     Indication: PRODUCT USED FOR UNKNOWN INDICATION
  21. ROXICODONE [Concomitant]
     Active Substance: OXYCODONE HYDROCHLORIDE
     Indication: PAIN
     Route: 048

REACTIONS (18)
  - Acute kidney injury [Unknown]
  - Biliary sepsis [Recovered/Resolved]
  - Cardiac failure congestive [Unknown]
  - Supraventricular extrasystoles [Unknown]
  - Myocardial ischaemia [Unknown]
  - Pneumonia [Unknown]
  - Atrial fibrillation [Unknown]
  - Pancytopenia [Unknown]
  - Pleural effusion [Unknown]
  - Thrombocytopenia [Unknown]
  - Lactic acidosis [Unknown]
  - Electrocardiogram QT prolonged [Unknown]
  - International normalised ratio increased [Unknown]
  - Cholecystitis acute [Recovered/Resolved]
  - Haemobilia [Unknown]
  - Haemorrhagic anaemia [Unknown]
  - Hypocalcaemia [Unknown]
  - Escherichia bacteraemia [Recovered/Resolved]

NARRATIVE: CASE EVENT DATE: 20180309
